FAERS Safety Report 23115063 (Version 3)
Quarter: 2024Q1

REPORT INFORMATION
  Report Type: Spontaneous
  Country: AU (occurrence: AU)
  Receive Date: 20231027
  Receipt Date: 20240107
  Transmission Date: 20240410
  Serious: Yes (Other)
  Sender: FDA-Public Use
  Company Number: AU-002147023-NVSC2023AU032319

PATIENT
  Age: 27 Year
  Sex: Female

DRUGS (8)
  1. CYCLOSPORINE [Suspect]
     Active Substance: CYCLOSPORINE
     Indication: Lupus nephritis
     Dosage: UNK
     Route: 065
     Dates: start: 201410, end: 201504
  2. RITUXIMAB [Suspect]
     Active Substance: RITUXIMAB
     Indication: Lupus nephritis
     Dosage: UNK
     Route: 065
     Dates: start: 201407
  3. PREDNISOLONE [Suspect]
     Active Substance: PREDNISOLONE
     Indication: Lupus nephritis
     Dosage: 20 MG, QD
     Route: 065
     Dates: start: 201201, end: 201901
  4. CYCLOPHOSPHAMIDE [Suspect]
     Active Substance: CYCLOPHOSPHAMIDE
     Indication: Lupus nephritis
     Dosage: UNK
     Route: 065
     Dates: start: 2014, end: 201410
  5. CYCLOPHOSPHAMIDE [Suspect]
     Active Substance: CYCLOPHOSPHAMIDE
     Dosage: UNK
     Route: 065
     Dates: start: 201504, end: 2015
  6. MYCOPHENOLATE MOFETIL [Suspect]
     Active Substance: MYCOPHENOLATE MOFETIL
     Indication: Lupus nephritis
     Dosage: UNK
     Route: 065
     Dates: start: 201201, end: 2014
  7. MYCOPHENOLATE MOFETIL [Suspect]
     Active Substance: MYCOPHENOLATE MOFETIL
     Dosage: UNK
     Route: 065
     Dates: start: 2015, end: 201901
  8. TACROLIMUS [Suspect]
     Active Substance: TACROLIMUS
     Indication: Lupus nephritis
     Dosage: UNK
     Route: 065
     Dates: end: 2016

REACTIONS (5)
  - Lupus nephritis [Unknown]
  - Condition aggravated [Unknown]
  - Remission not achieved [Unknown]
  - Product use in unapproved indication [Unknown]
  - Drug ineffective [Unknown]
